FAERS Safety Report 8542399-0 (Version None)
Quarter: 2012Q3

REPORT INFORMATION
  Report Type: 
  Country: None (occurrence: None)
  Receive Date: 20120726
  Receipt Date: 20110819
  Transmission Date: 20120928
  Serious: Yes (Hospitalization)
  Sender: FDA-Public Use
  Company Number: US-ASTRAZENECA-2011SE49820

PATIENT
  Age: 66 Year
  Sex: Male

DRUGS (6)
  1. SEROQUEL [Suspect]
     Route: 048
  2. NAMENDA [Concomitant]
  3. TRAZODONE HCL [Concomitant]
  4. SEROQUEL [Suspect]
     Route: 048
  5. ARICEPT [Concomitant]
  6. LAMICTAL [Concomitant]

REACTIONS (2)
  - CHEST PAIN [None]
  - DEMENTIA [None]
